FAERS Safety Report 25292096 (Version 1)
Quarter: 2025Q2

REPORT INFORMATION
  Report Type: Spontaneous
  Country: US (occurrence: US)
  Receive Date: 20250510
  Receipt Date: 20250510
  Transmission Date: 20250716
  Serious: No
  Sender: SANOFI AVENTIS
  Company Number: US-SA-2025SA123008

PATIENT
  Age: 40 Year
  Sex: Female

DRUGS (7)
  1. DUPIXENT [Suspect]
     Active Substance: DUPILUMAB
     Indication: Dermatitis atopic
     Route: 058
     Dates: start: 20240604, end: 20250424
  2. BETAMETHASONE [Concomitant]
     Active Substance: BETAMETHASONE
  3. TACROLIMUS [Concomitant]
     Active Substance: TACROLIMUS
  4. SERTRALINE [Concomitant]
     Active Substance: SERTRALINE HYDROCHLORIDE
  5. OPZELURA [Concomitant]
     Active Substance: RUXOLITINIB PHOSPHATE
  6. PRILOSEC [Concomitant]
     Active Substance: OMEPRAZOLE MAGNESIUM
  7. BUPROPION [Concomitant]
     Active Substance: BUPROPION

REACTIONS (1)
  - Maternal exposure during pregnancy [Unknown]
